FAERS Safety Report 4358953-6 (Version None)
Quarter: 2004Q2

REPORT INFORMATION
  Report Type: 
  Country: None (occurrence: None)
  Receive Date: 20040512
  Receipt Date: 20040426
  Transmission Date: 20050107
  Serious: Yes (Hospitalization, Other)
  Sender: FDA-Public Use
  Company Number: USA040465913

PATIENT
  Age: 79 Year
  Sex: Male

DRUGS (2)
  1. FORTEO [Suspect]
     Indication: OSTEOPOROSIS
     Dates: start: 20040120
  2. ARICEPT [Concomitant]

REACTIONS (5)
  - BRONCHITIS [None]
  - CONVULSION [None]
  - MEDICATION ERROR [None]
  - PYREXIA [None]
  - URINARY TRACT INFECTION [None]
